FAERS Safety Report 5496675-9 (Version None)
Quarter: 2007Q4

REPORT INFORMATION
  Report Type: 
  Country: None (occurrence: None)
  Receive Date: 20071025
  Receipt Date: 20070827
  Transmission Date: 20080405
  Serious: No
  Sender: FDA-Public Use
  Company Number: A0661047A

PATIENT
  Age: 60 Year
  Sex: Female
  Weight: 110 kg

DRUGS (12)
  1. ADVAIR DISKUS 100/50 [Suspect]
     Indication: ASTHMA
     Route: 055
     Dates: start: 20050825, end: 20070514
  2. FORADIL [Suspect]
     Indication: ASTHMA
     Route: 065
     Dates: start: 20070517, end: 20070622
  3. ASMANEX TWISTHALER [Suspect]
     Indication: ASTHMA
     Route: 065
     Dates: start: 20070517, end: 20070622
  4. EFFEXOR [Concomitant]
     Indication: DEPRESSION
  5. EFFEXOR XR [Concomitant]
     Indication: DEPRESSION
     Dates: start: 19940101
  6. HYDROCHLOROTHIAZIDE [Concomitant]
     Dates: start: 20061012
  7. ESTRADIOL [Concomitant]
     Dates: start: 20020908
  8. INSULIN [Concomitant]
     Dates: start: 20030911
  9. LOSARTAN POTASSIUM [Concomitant]
     Dates: start: 20000615
  10. SIMVASTATIN [Concomitant]
     Dates: start: 20050318
  11. OMEPRAZOLE [Concomitant]
     Dates: start: 20000310
  12. AMLODIPINE [Concomitant]
     Dates: start: 20070101

REACTIONS (2)
  - DEPRESSION [None]
  - THERAPEUTIC RESPONSE DECREASED [None]
